FAERS Safety Report 21378341 (Version 3)
Quarter: 2022Q4

REPORT INFORMATION
  Report Type: Report from Study
  Country: US (occurrence: US)
  Receive Date: 20220927
  Receipt Date: 20221221
  Transmission Date: 20230113
  Serious: No
  Sender: FDA-Public Use
  Company Number: US-NOVARTISTESTPH-NVSC2022US214218

PATIENT

DRUGS (1)
  1. KESIMPTA [Suspect]
     Active Substance: OFATUMUMAB
     Indication: Relapsing multiple sclerosis
     Dosage: UNK (FREQUENCY: ONCE EVERY TWO WEEKS)
     Route: 058

REACTIONS (3)
  - Musculoskeletal stiffness [Recovered/Resolved]
  - Hypoaesthesia [Recovered/Resolved]
  - Therapeutic product effect decreased [Recovered/Resolved]
